FAERS Safety Report 15258114 (Version 1)
Quarter: 2018Q3

REPORT INFORMATION
  Report Type: Report from Study
  Country: AT (occurrence: AT)
  Receive Date: 20180809
  Receipt Date: 20180809
  Transmission Date: 20181010
  Serious: Yes (Hospitalization)
  Sender: FDA-Public Use
  Company Number: AT-SUN PHARMACEUTICAL INDUSTRIES LTD-2018R1-180873

PATIENT
  Age: 40 Year
  Sex: Female

DRUGS (1)
  1. METHOTREXATE. [Suspect]
     Active Substance: METHOTREXATE
     Indication: PRODUCT USED FOR UNKNOWN INDICATION
     Dosage: 55 MG
     Route: 048

REACTIONS (15)
  - Anorectal disorder [Unknown]
  - Pyrexia [Unknown]
  - Diarrhoea [Unknown]
  - Vaginal lesion [Unknown]
  - Intentional overdose [Unknown]
  - Gastrointestinal haemorrhage [Unknown]
  - Tachycardia [Unknown]
  - Sepsis [Unknown]
  - Hypertension [Unknown]
  - Atrial fibrillation [Unknown]
  - Oral disorder [Unknown]
  - Gastritis haemorrhagic [Unknown]
  - Duodenal ulcer [Unknown]
  - Abscess [Unknown]
  - Pancytopenia [Unknown]
